FAERS Safety Report 4617513-X (Version None)
Quarter: 2005Q1

REPORT INFORMATION
  Report Type: 
  Country: None (occurrence: None)
  Receive Date: 20050314
  Receipt Date: 20050304
  Transmission Date: 20050727
  Serious: Yes (Hospitalization)
  Sender: FDA-Public Use
  Company Number: 200510032BYL

PATIENT
  Age: 4 Year
  Sex: Female
  Weight: 11 kg

DRUGS (7)
  1. GAMIMUNE N 5% [Suspect]
     Indication: KAWASAKI'S DISEASE
     Dosage: 22.5 G, TOTAL DAILY, INTRAVENOUS
     Route: 042
     Dates: start: 20041214, end: 20041215
  2. ASPIRIN [Suspect]
     Indication: KAWASAKI'S DISEASE
     Dosage: 350 MG, TOTAL DAILY, ORAL
     Route: 048
     Dates: start: 20041212
  3. CARBENIN [Concomitant]
  4. ASVERIN [Concomitant]
  5. PERIACTIN [Concomitant]
  6. MUCODYNE [Concomitant]
  7. HOKUNALIN [Concomitant]

REACTIONS (3)
  - ALANINE AMINOTRANSFERASE INCREASED [None]
  - ASPARTATE AMINOTRANSFERASE INCREASED [None]
  - LIVER DISORDER [None]
